FAERS Safety Report 16952866 (Version 2)
Quarter: 2019Q4

REPORT INFORMATION
  Report Type: Spontaneous
  Country: JP (occurrence: JP)
  Receive Date: 20191023
  Receipt Date: 20191115
  Transmission Date: 20200122
  Serious: Yes (Death, Other)
  Sender: FDA-Public Use
  Company Number: JP-BRISTOL-MYERS SQUIBB COMPANY-BMS-2019-101809

PATIENT
  Age: 47 Year
  Sex: Male
  Weight: 86.4 kg

DRUGS (1)
  1. OPDIVO [Suspect]
     Active Substance: NIVOLUMAB
     Indication: HEAD AND NECK CANCER
     Dosage: 260 MILLIGRAM
     Route: 041
     Dates: start: 20171005, end: 20180111

REACTIONS (1)
  - Death [Fatal]

NARRATIVE: CASE EVENT DATE: 20181111
